FAERS Safety Report 9702922 (Version 1)
Quarter: 2013Q4

REPORT INFORMATION
  Report Type: Report from Study
  Country: PE (occurrence: PE)
  Receive Date: 20131121
  Receipt Date: 20131121
  Transmission Date: 20140711
  Serious: Yes (Hospitalization)
  Sender: FDA-Public Use
  Company Number: PE-ROCHE-1304521

PATIENT
  Age: 9 Year
  Sex: Female

DRUGS (1)
  1. PULMOZYME [Suspect]
     Indication: CYSTIC FIBROSIS
     Route: 048
     Dates: start: 20120108

REACTIONS (1)
  - Staphylococcal infection [Not Recovered/Not Resolved]
